FAERS Safety Report 4692823-9 (Version None)
Quarter: 2005Q2

REPORT INFORMATION
  Report Type: 
  Country: None (occurrence: None)
  Receive Date: 20050617
  Receipt Date: 20050414
  Transmission Date: 20051028
  Serious: Yes (Other)
  Sender: FDA-Public Use
  Company Number: PHEH2005US04372

PATIENT
  Age: 77 Year
  Sex: Female
  Weight: 59 kg

DRUGS (6)
  1. ZOLEDRONATE [Suspect]
     Indication: BREAST CANCER METASTATIC
     Dosage: 4 MG EVERY 4 WEEKS
     Dates: start: 20020430, end: 20050310
  2. FASLODEX [Concomitant]
     Indication: BREAST CANCER FEMALE
     Dosage: 250 MG, UNK
     Dates: start: 20050308
  3. XELODA [Concomitant]
     Dosage: 1-2 GRAM QD
     Dates: start: 20030202, end: 20040106
  4. TAXOTERE [Concomitant]
     Dosage: 60 MG EVERY 3 WEEKS
     Route: 042
     Dates: start: 20040205, end: 20050208
  5. DEXAMETHASONE [Concomitant]
     Dosage: 10 MG Q3W PRIOR TO TAXOTERE
     Route: 042
     Dates: start: 20040205, end: 20050208
  6. METOPROLOL [Concomitant]

REACTIONS (9)
  - BONE DEBRIDEMENT [None]
  - BREATH SOUNDS DECREASED [None]
  - FATIGUE [None]
  - MALIGNANT NEOPLASM PROGRESSION [None]
  - ORAL PAIN [None]
  - OSTEOMYELITIS [None]
  - OSTEONECROSIS [None]
  - PRIMARY SEQUESTRUM [None]
  - SEQUESTRECTOMY [None]
